FAERS Safety Report 5387544-3 (Version None)
Quarter: 2007Q3

REPORT INFORMATION
  Report Type: 
  Country: None (occurrence: None)
  Receive Date: 20070712
  Receipt Date: 20070702
  Transmission Date: 20080115
  Serious: Yes (Life-Threatening)
  Sender: FDA-Public Use
  Company Number: B047438A

PATIENT
  Age: 16 Year
  Sex: Male

DRUGS (5)
  1. CEFAZOLIN SODIUM [Suspect]
     Indication: INFECTION PROPHYLAXIS
     Dosage: 1 GRAM(S) / PER DAY / INTRAVENOUS
     Route: 042
     Dates: start: 20060502, end: 20060502
  2. PROPOFOL [Concomitant]
  3. FENTANYL TRANSDERMAL SYSTEM [Concomitant]
  4. VECURONIUM BROMIDE [Concomitant]
  5. ATROPINE SULPHATE [Concomitant]

REACTIONS (1)
  - ANAPHYLACTIC SHOCK [None]
